FAERS Safety Report 9191064 (Version 1)
Quarter: 2013Q1

REPORT INFORMATION
  Report Type: Spontaneous
  Country: US (occurrence: US)
  Receive Date: 20130326
  Receipt Date: 20130326
  Transmission Date: 20140127
  Serious: No
  Sender: FDA-Public Use
  Company Number: US-009507513-1303USA011742

PATIENT
  Age: 35 Year
  Sex: Female

DRUGS (3)
  1. SAPHRIS [Suspect]
     Dosage: 5 MG, TAKEN TWICE DAILY
     Route: 060
     Dates: start: 201207
  2. COGENTIN [Concomitant]
     Dosage: 2 MG, DAILY
  3. ZOLOFT [Concomitant]
     Dosage: 200 MG, ONCE DAILY

REACTIONS (1)
  - Weight increased [Recovering/Resolving]
